FAERS Safety Report 13518199 (Version 2)
Quarter: 2017Q3

REPORT INFORMATION
  Report Type: Spontaneous
  Country: US (occurrence: US)
  Receive Date: 20170505
  Receipt Date: 20170923
  Transmission Date: 20171127
  Serious: No
  Sender: FDA-Public Use
  Company Number: US-009507513-1704USA009890

PATIENT
  Age: 32 Year
  Sex: Female
  Weight: 76.19 kg

DRUGS (1)
  1. NEXPLANON [Suspect]
     Active Substance: ETONOGESTREL
     Indication: CONTRACEPTION
     Dosage: 1 ROD, EVERY 3 YEARS, LEFT ARM
     Route: 059
     Dates: start: 20170310, end: 20170419

REACTIONS (16)
  - Tearfulness [Not Recovered/Not Resolved]
  - Depression [Not Recovered/Not Resolved]
  - Malaise [Recovered/Resolved]
  - Nausea [Unknown]
  - Migration of implanted drug [Recovered/Resolved]
  - Dysmenorrhoea [Unknown]
  - Hypertension [Recovered/Resolved]
  - Crying [Unknown]
  - Complication associated with device [Recovered/Resolved]
  - Implant site fibrosis [Not Recovered/Not Resolved]
  - Device difficult to use [Recovered/Resolved]
  - Headache [Recovered/Resolved]
  - Mood swings [Unknown]
  - Menorrhagia [Not Recovered/Not Resolved]
  - Implant site rash [Not Recovered/Not Resolved]
  - Device kink [Recovered/Resolved]

NARRATIVE: CASE EVENT DATE: 2017
